FAERS Safety Report 4756696-8 (Version None)
Quarter: 2005Q3

REPORT INFORMATION
  Report Type: 
  Country: None (occurrence: None)
  Receive Date: 20050830
  Receipt Date: 20050818
  Transmission Date: 20060218
  Serious: Yes (Hospitalization)
  Sender: FDA-Public Use
  Company Number: FR-SANOFI-SYNTHELABO-A02200502223

PATIENT
  Age: 85 Year
  Sex: Female
  Weight: 55 kg

DRUGS (3)
  1. STILNOX [Suspect]
     Indication: DRUG USE FOR UNKNOWN INDICATION
     Route: 048
  2. EXELON [Suspect]
     Indication: DEMENTIA ALZHEIMER'S TYPE
     Route: 048
     Dates: start: 20050112, end: 20050120
  3. ESIDRIX [Concomitant]
     Indication: HYPERTENSION
     Route: 048
     Dates: end: 20050125

REACTIONS (6)
  - BLOOD CREATININE DECREASED [None]
  - CEREBROVASCULAR ACCIDENT [None]
  - CREATININE RENAL CLEARANCE DECREASED [None]
  - GRAND MAL CONVULSION [None]
  - HYPONATRAEMIA [None]
  - ISCHAEMIC STROKE [None]
